FAERS Safety Report 7305297-6 (Version None)
Quarter: 2011Q1

REPORT INFORMATION
  Report Type: 
  Country: None (occurrence: None)
  Receive Date: 20110222
  Receipt Date: 20110217
  Transmission Date: 20110831
  Serious: Yes (Hospitalization)
  Sender: FDA-Public Use
  Company Number: US-AMGEN-USASP2011008227

PATIENT
  Age: 62 Year
  Sex: Male

DRUGS (13)
  1. COUMADIN [Concomitant]
  2. COREG [Concomitant]
  3. ASA [Concomitant]
  4. FLOMAX [Concomitant]
  5. PREDNISONE [Concomitant]
  6. NPLATE [Suspect]
     Indication: IDIOPATHIC THROMBOCYTOPENIC PURPURA
     Dosage: 100 A?G, UNK
     Dates: start: 20101229
  7. DIGOXIN [Concomitant]
  8. RENA-VITE [Concomitant]
  9. PLAVIX [Concomitant]
  10. ACCUPRIL [Concomitant]
  11. ZANTAC                             /00550801/ [Concomitant]
  12. FENTANYL                           /00174602/ [Concomitant]
     Route: 062
  13. LYRICA [Concomitant]

REACTIONS (1)
  - ACUTE MYOCARDIAL INFARCTION [None]
